FAERS Safety Report 10351358 (Version 2)
Quarter: 2014Q3

REPORT INFORMATION
  Report Type: Spontaneous
  Country: BR (occurrence: BR)
  Receive Date: 20140730
  Receipt Date: 20140805
  Transmission Date: 20150326
  Serious: Yes (Hospitalization, Other)
  Sender: FDA-Public Use
  Company Number: BR-PFIZER INC-2014210586

PATIENT
  Age: 20 Year
  Sex: Female
  Weight: 41 kg

DRUGS (10)
  1. RAPAMUNE [Suspect]
     Active Substance: SIROLIMUS
     Dosage: 6 MG, EVERY 12 HOURS
     Route: 048
     Dates: end: 20140511
  2. DIPYRONE [Concomitant]
     Active Substance: DIPYRONE
     Indication: PAIN
     Dosage: 500 MG, AS NEEDED
     Route: 048
  3. RAPAMUNE [Suspect]
     Active Substance: SIROLIMUS
     Dosage: 3 MG, EVERY 12 HOURS
     Route: 048
     Dates: start: 20140515, end: 20140520
  4. AMITRIPTYLINE HYDROCHLORIDE. [Concomitant]
     Active Substance: AMITRIPTYLINE HYDROCHLORIDE
     Dosage: 25 MG, AT NIGHT
     Route: 048
  5. MYCOPHENOLATE SODIUM [Concomitant]
     Active Substance: MYCOPHENOLATE SODIUM
     Dosage: 360 MG, 2X/DAY
     Route: 048
  6. TOPIRAMATE. [Concomitant]
     Active Substance: TOPIRAMATE
     Dosage: 50 MG, AT NIGHT
     Route: 048
  7. OMEPRAZOLE. [Concomitant]
     Active Substance: OMEPRAZOLE
     Dosage: 20 MG, UNK
     Route: 048
  8. RAPAMUNE [Suspect]
     Active Substance: SIROLIMUS
     Indication: PROPHYLAXIS AGAINST TRANSPLANT REJECTION
     Dosage: 5 MG, 2X/DAY
     Route: 048
     Dates: start: 20090714
  9. RAPAMUNE [Suspect]
     Active Substance: SIROLIMUS
     Dosage: 2 MG, EVERY 12 HOURS
     Route: 048
     Dates: start: 20140521
  10. PROPRANOLOL [Concomitant]
     Active Substance: PROPRANOLOL\PROPRANOLOL HYDROCHLORIDE
     Dosage: 10 MG, 2X/DAY
     Route: 048

REACTIONS (7)
  - Skin lesion [Recovering/Resolving]
  - Posterior reversible encephalopathy syndrome [Unknown]
  - Pruritus [Recovering/Resolving]
  - Off label use [Not Recovered/Not Resolved]
  - Rash erythematous [Recovering/Resolving]
  - Subacute cutaneous lupus erythematosus [Unknown]
  - Transaminases increased [Not Recovered/Not Resolved]

NARRATIVE: CASE EVENT DATE: 20090714
